FAERS Safety Report 5201451-8 (Version None)
Quarter: 2006Q4

REPORT INFORMATION
  Report Type: 
  Country: None (occurrence: None)
  Receive Date: 20061004
  Receipt Date: 20060509
  Transmission Date: 20070319
  Serious: No
  Sender: FDA-Public Use
  Company Number: US200605001762

PATIENT
  Age: 46 Year
  Sex: Female

DRUGS (5)
  1. ALIMTA [Suspect]
     Indication: NON-SMALL CELL LUNG CANCER
     Dosage: 500 MG/M2, INTRAVENOUS
     Route: 042
     Dates: start: 20060101
  2. CARBOPLATIN [Concomitant]
  3. FOLIC ACID [Concomitant]
  4. CYANOCOBALAMIN [Concomitant]
  5. DECADRON [Concomitant]

REACTIONS (3)
  - ABDOMINAL PAIN [None]
  - HYPERSENSITIVITY [None]
  - PERIPHERAL SENSORY NEUROPATHY [None]
